FAERS Safety Report 23838881 (Version 1)
Quarter: 2024Q2

REPORT INFORMATION
  Report Type: Spontaneous
  Country: US (occurrence: US)
  Receive Date: 20240509
  Receipt Date: 20240509
  Transmission Date: 20240716
  Serious: Yes (Hospitalization, Other)
  Sender: FDA-Public Use
  Company Number: US-BEIGENE-BGN-2024-006914

PATIENT

DRUGS (19)
  1. BRUKINSA [Suspect]
     Active Substance: ZANUBRUTINIB
     Indication: Chronic lymphocytic leukaemia
     Dosage: 160 MILLIGRAM, DAILY
     Route: 048
     Dates: start: 2021, end: 202309
  2. BRUKINSA [Suspect]
     Active Substance: ZANUBRUTINIB
     Dosage: 80 MILLIGRAM, DAILY
     Route: 048
     Dates: start: 202309, end: 20240404
  3. OCTAGAM IMMUNE GLOBULIN (HUMAN) [Concomitant]
     Active Substance: HUMAN IMMUNOGLOBULIN G
     Dosage: 50 GRAM, QWK
     Dates: start: 2018
  4. LIOTHYRONINE [Concomitant]
     Active Substance: LIOTHYRONINE
     Indication: Autoimmune thyroiditis
     Dosage: 5 MICROGRAM, BID
     Dates: start: 2018
  5. LEVOTHYROXINE [Concomitant]
     Active Substance: LEVOTHYROXINE\LEVOTHYROXINE SODIUM
     Indication: Autoimmune thyroiditis
     Dosage: 150 MICROGRAM, DAILY
     Dates: start: 2018
  6. BUSPIRONE [Concomitant]
     Active Substance: BUSPIRONE HYDROCHLORIDE
     Dosage: 10 MILLIGRAM
     Dates: start: 2018
  7. MECLIZINE [Concomitant]
     Active Substance: MECLIZINE HYDROCHLORIDE
     Dosage: 25 MILLIGRAM, QD
     Dates: start: 2018
  8. METOPROLOL [Concomitant]
     Active Substance: METOPROLOL
     Dosage: 75 MILLIGRAM, BID
     Dates: start: 2018
  9. ACYCLOVIR [Concomitant]
     Active Substance: ACYCLOVIR
     Dosage: 400 MILLIGRAM, BID
     Dates: start: 2018
  10. XIIDRA [Concomitant]
     Active Substance: LIFITEGRAST
     Dosage: UNK
     Dates: start: 2018
  11. ELIQUIS [Concomitant]
     Active Substance: APIXABAN
     Dosage: 5 MILLIGRAM, BID
     Dates: start: 2018
  12. BUPROPION [Concomitant]
     Active Substance: BUPROPION
     Dosage: 300 MILLIGRAM, QD
     Dates: start: 2018
  13. PREDNISONE [Concomitant]
     Active Substance: PREDNISONE
     Dosage: 20-60 MILLIGRAMS
     Dates: start: 2018
  14. TERAZOSIN [Concomitant]
     Active Substance: TERAZOSIN HYDROCHLORIDE
     Dosage: 1 MILLIGRAM
     Dates: start: 2018
  15. HYDROXYCHLOROQUINE [Concomitant]
     Active Substance: HYDROXYCHLOROQUINE
     Dosage: 200 MILLIGRAM, QD
     Dates: start: 2018
  16. CLARITIN [Concomitant]
     Active Substance: LORATADINE
     Dosage: 10 MILLIGRAM, QD
     Dates: start: 2018
  17. Vitamins with minerals tablets (21) [Concomitant]
     Dosage: UNK
     Dates: start: 2018
  18. ZOLPIDEM [Concomitant]
     Active Substance: ZOLPIDEM TARTRATE
     Indication: Insomnia
     Dosage: 5 TO 10 MG AT NIGHT, PRN
     Dates: start: 2018
  19. GABAPENTIN [Concomitant]
     Active Substance: GABAPENTIN
     Dosage: 200 TO 400 MG, PRN
     Dates: start: 2018

REACTIONS (7)
  - Rash [Recovering/Resolving]
  - Dermatomyositis [Unknown]
  - Coccidioidomycosis [Unknown]
  - COVID-19 [Unknown]
  - Sunburn [Unknown]
  - Drug interaction [Unknown]
  - Off label use [Unknown]

NARRATIVE: CASE EVENT DATE: 20210101
